FAERS Safety Report 8816886 (Version 2)
Quarter: 2012Q4

REPORT INFORMATION
  Report Type: Spontaneous
  Country: PT (occurrence: None)
  Receive Date: 20121002
  Receipt Date: 20121009
  Transmission Date: 20130627
  Serious: Yes (Other)
  Sender: FDA-Public Use
  Company Number: 7162837

PATIENT
  Age: 14 Year
  Sex: Female

DRUGS (1)
  1. LEVOTHYROXINE [Suspect]
     Indication: HASHIMOTO^S THYROIDITIS

REACTIONS (2)
  - Addison^s disease [None]
  - Blood sodium decreased [None]
